FAERS Safety Report 7225267-6 (Version None)
Quarter: 2011Q1

REPORT INFORMATION
  Report Type: 
  Country: None (occurrence: None)
  Receive Date: 20110113
  Receipt Date: 20110106
  Transmission Date: 20110831
  Serious: Yes (Death)
  Sender: FDA-Public Use
  Company Number: B0692962A

PATIENT
  Sex: Female

DRUGS (3)
  1. LAMICTAL [Suspect]
     Indication: EPILEPSY
     Dosage: 150MG PER DAY
     Route: 048
     Dates: start: 20091007, end: 20110105
  2. PHENOBAL [Concomitant]
     Indication: EPILEPSY
     Dosage: 40MG PER DAY
     Route: 065
  3. TEGRETOL [Concomitant]
     Indication: EPILEPSY
     Route: 048

REACTIONS (1)
  - DEATH [None]
